FAERS Safety Report 11317823 (Version 4)
Quarter: 2016Q3

REPORT INFORMATION
  Report Type: Spontaneous
  Country: US (occurrence: US)
  Receive Date: 20150728
  Receipt Date: 20160803
  Transmission Date: 20161109
  Serious: Yes (Other)
  Sender: FDA-Public Use
  Company Number: US-BAYER-2015-378374

PATIENT
  Age: 41 Year
  Sex: Male
  Weight: 97.51 kg

DRUGS (10)
  1. LEVAQUIN [Suspect]
     Active Substance: LEVOFLOXACIN
     Dosage: UNK
     Dates: start: 200902
  2. METOPROLOL. [Concomitant]
     Active Substance: METOPROLOL
     Dosage: 25 MG, UNK
  3. CELECOXIB. [Concomitant]
     Active Substance: CELECOXIB
  4. AMOXICILLIN. [Concomitant]
     Active Substance: AMOXICILLIN
  5. CIPRO [Suspect]
     Active Substance: CIPROFLOXACIN HYDROCHLORIDE
  6. GABAPENTIN. [Concomitant]
     Active Substance: GABAPENTIN
  7. DOXAZOSIN [Concomitant]
     Active Substance: DOXAZOSIN\DOXAZOSIN MESYLATE
     Dosage: 4 MG, QD
  8. AMLODIPINE [Concomitant]
     Active Substance: AMLODIPINE BESYLATE
     Dosage: 10 MG, QD
  9. AVELOX [Suspect]
     Active Substance: MOXIFLOXACIN HYDROCHLORIDE
     Dosage: UNK
     Dates: start: 200705
  10. CYCLOBENZAPRINE [Concomitant]
     Active Substance: CYCLOBENZAPRINE
     Dosage: 10 MG, PRN

REACTIONS (10)
  - Pain [None]
  - Anxiety [None]
  - Pain in extremity [None]
  - Hypoaesthesia [None]
  - Neuropathy peripheral [None]
  - Anhedonia [None]
  - Injury [None]
  - Paraesthesia [None]
  - Economic problem [None]
  - Emotional distress [None]

NARRATIVE: CASE EVENT DATE: 20040504
